FAERS Safety Report 13698814 (Version 1)
Quarter: 2017Q2

REPORT INFORMATION
  Report Type: Spontaneous
  Country: JP (occurrence: JP)
  Receive Date: 20170628
  Receipt Date: 20170628
  Transmission Date: 20170830
  Serious: Yes (Hospitalization, Other)
  Sender: FDA-Public Use
  Company Number: PHJP2017JP014346

PATIENT
  Age: 72 Year
  Sex: Female

DRUGS (1)
  1. TASIGNA [Suspect]
     Active Substance: NILOTINIB
     Indication: CHRONIC MYELOID LEUKAEMIA
     Dosage: 100 MG, QD
     Route: 048
     Dates: start: 2014, end: 201704

REACTIONS (6)
  - Thrombosis [Unknown]
  - Peripheral arterial occlusive disease [Recovering/Resolving]
  - Osteomyelitis [Recovered/Resolved]
  - Gangrene [Unknown]
  - Pain [Unknown]
  - Skin disorder [Unknown]

NARRATIVE: CASE EVENT DATE: 201704
